FAERS Safety Report 10346147 (Version 2)
Quarter: 2014Q4

REPORT INFORMATION
  Report Type: Spontaneous
  Country: IT (occurrence: IT)
  Receive Date: 20140728
  Receipt Date: 20141107
  Transmission Date: 20150528
  Serious: Yes (Hospitalization)
  Sender: FDA-Public Use
  Company Number: IT-ABBVIE-14P-083-1264983-00

PATIENT
  Age: 35 Year
  Sex: Female

DRUGS (5)
  1. MEPRAL [Suspect]
     Active Substance: OMEPRAZOLE SODIUM
     Indication: ABDOMINAL PAIN UPPER
     Route: 048
     Dates: start: 20140518, end: 20140518
  2. OKI [Suspect]
     Active Substance: KETOPROFEN LYSINE
     Indication: PRODUCT USED FOR UNKNOWN INDICATION
     Route: 048
     Dates: start: 20140517, end: 20140517
  3. ZIMOX [Suspect]
     Active Substance: AMOXICILLIN
     Indication: ABDOMINAL PAIN UPPER
     Route: 048
     Dates: start: 20140518, end: 20140518
  4. KLACID [Suspect]
     Active Substance: CLARITHROMYCIN
     Indication: ABDOMINAL PAIN UPPER
     Route: 048
     Dates: start: 20140518, end: 20140518
  5. ALL OTHER THERAPEUTIC PRODUCTS [Concomitant]
     Active Substance: UNSPECIFIED INGREDIENT
     Indication: PRODUCT USED FOR UNKNOWN INDICATION
     Dates: start: 20140523, end: 20140528

REACTIONS (4)
  - Erythema [Recovered/Resolved]
  - Adverse drug reaction [Recovered/Resolved]
  - Rash generalised [Recovered/Resolved]
  - Angioedema [Recovered/Resolved]

NARRATIVE: CASE EVENT DATE: 20140518
